FAERS Safety Report 4471704-X (Version None)
Quarter: 2004Q4

REPORT INFORMATION
  Report Type: 
  Country: None (occurrence: None)
  Receive Date: 20041006
  Receipt Date: 20040923
  Transmission Date: 20050328
  Serious: Yes (Hospitalization, Disabling)
  Sender: FDA-Public Use
  Company Number: HQWYE336027SEP04

PATIENT
  Age: 37 Year
  Sex: Female
  Weight: 98.97 kg

DRUGS (5)
  1. EFFEXOR XR [Suspect]
     Indication: ANXIETY
     Dosage: 150 MG 1X PER 1 DAY, ORAL
     Route: 048
     Dates: start: 19960901, end: 19960901
  2. EFFEXOR XR [Suspect]
     Indication: BIPOLAR DISORDER
     Dosage: 150 MG 1X PER 1 DAY, ORAL
     Route: 048
     Dates: start: 19960901, end: 19960901
  3. TRAZODONE HCL [Concomitant]
  4. PROZAC [Concomitant]
  5. ATIVAN [Concomitant]

REACTIONS (6)
  - MUSCLE SPASMS [None]
  - NEURODEGENERATIVE DISORDER [None]
  - PAIN [None]
  - PANIC DISORDER [None]
  - POST-TRAUMATIC STRESS DISORDER [None]
  - TREMOR [None]
